FAERS Safety Report 16388713 (Version 1)
Quarter: 2019Q2

REPORT INFORMATION
  Report Type: Spontaneous
  Country: US (occurrence: US)
  Receive Date: 20190604
  Receipt Date: 20190604
  Transmission Date: 20190711
  Serious: No
  Sender: FDA-Public Use
  Company Number: US-JNJFOC-20190534376

PATIENT
  Age: 76 Year
  Sex: Female

DRUGS (9)
  1. TRAZODONE [Concomitant]
     Active Substance: TRAZODONE HYDROCHLORIDE
     Route: 065
  2. TRAMADOL. [Concomitant]
     Active Substance: TRAMADOL
     Route: 065
  3. NIZORAL A-D [Suspect]
     Active Substance: KETOCONAZOLE
     Indication: PERSONAL HYGIENE
     Route: 061
     Dates: start: 20190402
  4. VITAMINE C [Concomitant]
     Active Substance: ASCORBIC ACID
     Route: 065
  5. VITAMINE D [Concomitant]
     Active Substance: CHOLECALCIFEROL
     Route: 065
  6. LYRICA [Concomitant]
     Active Substance: PREGABALIN
     Route: 065
  7. TOPAMAX [Concomitant]
     Active Substance: TOPIRAMATE
     Route: 065
  8. BIOTIN [Concomitant]
     Active Substance: BIOTIN
     Route: 065
  9. CRANBERRY. [Concomitant]
     Active Substance: CRANBERRY
     Route: 065

REACTIONS (1)
  - Alopecia [Unknown]

NARRATIVE: CASE EVENT DATE: 20190420
